FAERS Safety Report 18274952 (Version 1)
Quarter: 2020Q3

REPORT INFORMATION
  Report Type: Spontaneous
  Country: US (occurrence: US)
  Receive Date: 20200917
  Receipt Date: 20200917
  Transmission Date: 20201103
  Serious: Yes (Hospitalization, Other)
  Sender: FDA-Public Use
  Company Number: US-ALKEM LABORATORIES LIMITED-US-ALKEM-2020-03979

PATIENT
  Age: 63 Year
  Sex: Female

DRUGS (3)
  1. LOW DOSE ESTROGEN [Concomitant]
     Indication: PRODUCT USED FOR UNKNOWN INDICATION
     Dosage: UNK
     Route: 065
  2. LISINOPRIL. [Concomitant]
     Active Substance: LISINOPRIL
     Indication: PRODUCT USED FOR UNKNOWN INDICATION
     Dosage: UNK
     Route: 065
  3. DEFERASIROX. [Suspect]
     Active Substance: DEFERASIROX
     Indication: IRON OVERLOAD
     Dosage: 500 MILLIGRAM, TID
     Route: 065

REACTIONS (4)
  - Hepatitis acute [Recovered/Resolved]
  - Confusional state [Recovered/Resolved]
  - Drug-induced liver injury [Recovered/Resolved]
  - Renal failure [Recovered/Resolved]
